FAERS Safety Report 7324171-2 (Version None)
Quarter: 2011Q1

REPORT INFORMATION
  Report Type: 
  Country: None (occurrence: None)
  Receive Date: 20110217
  Receipt Date: 20100211
  Transmission Date: 20110831
  Serious: Yes (Other)
  Sender: FDA-Public Use
  Company Number: TRP_07574_2011

PATIENT
  Sex: Female

DRUGS (2)
  1. RIBASPHERE [Suspect]
     Indication: PRODUCT USED FOR UNKNOWN INDICATION
     Dosage: DF
  2. PEGASYS [Suspect]
     Indication: PRODUCT USED FOR UNKNOWN INDICATION
     Dosage: DF

REACTIONS (9)
  - VOMITING [None]
  - DYSARTHRIA [None]
  - APHASIA [None]
  - PAIN [None]
  - HYPERTENSION [None]
  - NAUSEA [None]
  - CHILLS [None]
  - HEADACHE [None]
  - PERIPHERAL COLDNESS [None]
